FAERS Safety Report 10075065 (Version 1)
Quarter: 2014Q2

REPORT INFORMATION
  Report Type: Spontaneous
  Country: ZA (occurrence: ZA)
  Receive Date: 20140414
  Receipt Date: 20140414
  Transmission Date: 20141212
  Serious: Yes (Hospitalization)
  Sender: FDA-Public Use
  Company Number: ZA-AMGEN INC.-ZAFSP2014026767

PATIENT
  Age: 63 Year
  Sex: Female

DRUGS (5)
  1. ENBREL [Suspect]
     Indication: RHEUMATOID ARTHRITIS
     Dosage: 50 MG, WEEKLY
     Route: 058
     Dates: start: 20131026, end: 20140328
  2. TRAMACET [Concomitant]
     Indication: RHEUMATOID ARTHRITIS
     Dosage: 1 X 3 A DAY
     Route: 048
     Dates: start: 2013
  3. SALAZOPYRIN [Concomitant]
     Indication: RHEUMATOID ARTHRITIS
     Dosage: 1 X2 A DAY
     Route: 048
     Dates: start: 2012
  4. PLASMOQUINE [Concomitant]
     Indication: RHEUMATOID ARTHRITIS
     Dosage: 1 DAILY
     Route: 048
     Dates: start: 2013
  5. METHOTREXATE [Concomitant]
     Indication: RHEUMATOID ARTHRITIS
     Dosage: 4 WEEKLY
     Route: 048
     Dates: start: 2013

REACTIONS (2)
  - Joint stiffness [Not Recovered/Not Resolved]
  - Back pain [Not Recovered/Not Resolved]
